FAERS Safety Report 19024259 (Version 5)
Quarter: 2021Q4

REPORT INFORMATION
  Report Type: Spontaneous
  Country: GB (occurrence: GB)
  Receive Date: 20210318
  Receipt Date: 20211129
  Transmission Date: 20220303
  Serious: Yes (Hospitalization, Other)
  Sender: FDA-Public Use
  Company Number: GB-MHRA-ADR 24529532

PATIENT
  Age: 43 Year
  Sex: Female

DRUGS (52)
  1. DOCETAXEL [Suspect]
     Active Substance: DOCETAXEL
     Indication: HER2 positive breast cancer
     Dosage: 148 MG, Q3W
     Route: 042
     Dates: start: 20171108, end: 20180131
  2. DOCETAXEL [Suspect]
     Active Substance: DOCETAXEL
     Indication: Breast cancer metastatic
     Dosage: 592 MG
     Route: 065
  3. TRASTUZUMAB [Suspect]
     Active Substance: TRASTUZUMAB
     Indication: Breast cancer metastatic
     Dosage: 8 MG, Q3W, INFUSION, SOLUTION
     Route: 042
     Dates: start: 20171108
  4. TRASTUZUMAB [Suspect]
     Active Substance: TRASTUZUMAB
     Indication: HER2 positive breast cancer
  5. PERTUZUMAB [Suspect]
     Active Substance: PERTUZUMAB
     Indication: Breast cancer metastatic
     Dosage: 840 MG, TIW
     Route: 042
     Dates: start: 20181120
  6. PERTUZUMAB [Suspect]
     Active Substance: PERTUZUMAB
     Indication: HER2 positive breast cancer
     Dosage: UNK(230)
     Route: 065
  7. PERTUZUMAB [Suspect]
     Active Substance: PERTUZUMAB
     Dosage: 840 MG, Q3W
     Route: 042
     Dates: start: 20181120
  8. BECLOMETHASONE DIPROPIONATE [Concomitant]
     Active Substance: BECLOMETHASONE DIPROPIONATE
     Indication: Cancer pain
     Dosage: 2 OT, QD (DOSE 2 PUFF)
     Route: 055
  9. BECLOMETHASONE DIPROPIONATE [Concomitant]
     Active Substance: BECLOMETHASONE DIPROPIONATE
     Dosage: 2 PUFF, BID
     Route: 055
  10. BECLOMETHASONE DIPROPIONATE [Concomitant]
     Active Substance: BECLOMETHASONE DIPROPIONATE
     Dosage: 2 OT, QD (DOSE 2 PUFF)
     Route: 055
  11. BECLOMETHASONE DIPROPIONATE [Concomitant]
     Active Substance: BECLOMETHASONE DIPROPIONATE
     Dosage: UNK (DOSE 2 PUFF)
     Route: 055
  12. LACTULOSE [Concomitant]
     Active Substance: LACTULOSE
     Indication: Prophylaxis
     Dosage: 10 ML, BID (0.5 DAY)
     Route: 048
  13. LACTULOSE [Concomitant]
     Active Substance: LACTULOSE
     Dosage: 10 ML, BID (0.5 DAY)
     Route: 048
  14. LACTULOSE [Concomitant]
     Active Substance: LACTULOSE
     Dosage: 10 ML
     Route: 065
  15. LACTULOSE [Concomitant]
     Active Substance: LACTULOSE
     Dosage: 10 ML
     Route: 048
  16. MIRTAZAPINE [Concomitant]
     Active Substance: MIRTAZAPINE
     Indication: Product used for unknown indication
     Dosage: 45 MG, QD
     Route: 048
  17. METFORMIN [Concomitant]
     Active Substance: METFORMIN HYDROCHLORIDE
     Indication: Product used for unknown indication
     Dosage: 1000 MG, QD
     Route: 048
  18. METFORMIN [Concomitant]
     Active Substance: METFORMIN HYDROCHLORIDE
     Dosage: 50 MG, QD
     Route: 048
  19. METFORMIN [Concomitant]
     Active Substance: METFORMIN HYDROCHLORIDE
     Dosage: 500 MG, QD
     Route: 048
  20. METFORMIN [Concomitant]
     Active Substance: METFORMIN HYDROCHLORIDE
     Dosage: 5 MG
     Route: 065
     Dates: start: 20181002, end: 20181002
  21. NITROFURANTOIN [Concomitant]
     Active Substance: NITROFURANTOIN
     Indication: Urinary tract infection
     Dosage: 200 MILLIGRAM, QD
     Route: 048
     Dates: start: 20181103, end: 20181109
  22. NITROFURANTOIN [Concomitant]
     Active Substance: NITROFURANTOIN
     Dosage: 50 MG
     Route: 048
     Dates: start: 20181103, end: 20181109
  23. OMEPRAZOLE [Concomitant]
     Active Substance: OMEPRAZOLE
     Indication: Product used for unknown indication
     Dosage: 40 MG, QD
     Route: 048
     Dates: start: 201710
  24. OXYCODONE [Concomitant]
     Active Substance: OXYCODONE
     Indication: Cancer pain
     Dosage: 110 MG, BID (0.5 DAY)
     Route: 048
  25. OXYCODONE [Concomitant]
     Active Substance: OXYCODONE
     Dosage: 220 MG, QD
     Route: 048
  26. QUETIAPINE [Concomitant]
     Active Substance: QUETIAPINE
     Indication: Depressed mood
     Dosage: 100 MG, QD
     Route: 048
     Dates: end: 2020
  27. QUETIAPINE [Concomitant]
     Active Substance: QUETIAPINE
     Indication: Depressed mood
     Dosage: 150 MG, QD
     Route: 048
     Dates: start: 2020
  28. RAMIPRIL [Concomitant]
     Active Substance: RAMIPRIL
     Indication: Product used for unknown indication
     Dosage: 1.25 MG, QD
     Route: 048
  29. RAMIPRIL [Concomitant]
     Active Substance: RAMIPRIL
     Dosage: UNK, PRN (DOSE 2 PUFF)
     Route: 055
  30. ALBUTEROL [Concomitant]
     Active Substance: ALBUTEROL
     Indication: Product used for unknown indication
     Dosage: PRN (DOSE 2 PUFF)
     Route: 055
  31. ALBUTEROL [Concomitant]
     Active Substance: ALBUTEROL
     Dosage: PRN (DOSE 2 PUFF)
     Route: 055
  32. ALBUTEROL [Concomitant]
     Active Substance: ALBUTEROL
     Dosage: PRN (DOSE 2 PUFF)
     Route: 065
  33. ALBUTEROL [Concomitant]
     Active Substance: ALBUTEROL
     Dosage: DOSE 2 PUFF
     Route: 055
  34. SIMVASTATIN [Concomitant]
     Active Substance: SIMVASTATIN
     Indication: Product used for unknown indication
     Dosage: 40 MG,QD
     Route: 048
  35. SODIUM PICOSULFATE [Concomitant]
     Active Substance: SODIUM PICOSULFATE
     Indication: Constipation
     Dosage: UNK
     Route: 048
  36. SODIUM PICOSULFATE [Concomitant]
     Active Substance: SODIUM PICOSULFATE
     Dosage: DOSE 10 OTHER (10 MG IN 10 ML)
     Route: 048
  37. SODIUM PICOSULFATE [Concomitant]
     Active Substance: SODIUM PICOSULFATE
     Dosage: DOSE 10 OTHER (10 MG IN 10 ML)
     Route: 048
  38. SODIUM PICOSULFATE [Concomitant]
     Active Substance: SODIUM PICOSULFATE
     Dosage: DOSE 10 OTHER (10 MG IN 10 ML)
     Route: 048
  39. SODIUM PICOSULFATE [Concomitant]
     Active Substance: SODIUM PICOSULFATE
     Dosage: UNK
     Route: 048
  40. SODIUM PICOSULFATE [Concomitant]
     Active Substance: SODIUM PICOSULFATE
     Dosage: 10 MG, QD
     Route: 048
  41. SODIUM PICOSULFATE [Concomitant]
     Active Substance: SODIUM PICOSULFATE
     Dosage: DOSE 10 OTHER (10 MG IN 10 ML)
     Route: 048
  42. BECLOMETHASONE DIPROPIONATE [Concomitant]
     Active Substance: BECLOMETHASONE DIPROPIONATE
     Indication: Product used for unknown indication
     Dosage: UNK (DOSE 2 PUFF (0.5 DAY)
     Route: 055
  43. LINEZOLID [Concomitant]
     Active Substance: LINEZOLID
     Indication: Device related infection
     Dosage: 600 MILLIGRAM
     Route: 048
     Dates: start: 20191125, end: 20191130
  44. CLONAZEPAM [Concomitant]
     Active Substance: CLONAZEPAM
     Indication: Muscle spasms
     Dosage: 250 MG, QD
     Route: 048
     Dates: start: 2020
  45. ONDANSETRON [Concomitant]
     Active Substance: ONDANSETRON
     Indication: Product used for unknown indication
     Dosage: 4 MG
     Route: 065
     Dates: start: 20181002, end: 20181002
  46. BECLOMETHASONE DIPROPIONATE [Concomitant]
     Active Substance: BECLOMETHASONE DIPROPIONATE
     Indication: Product used for unknown indication
     Dosage: 2 DF, BID (PUFF)
     Route: 065
  47. BECLOMETHASONE DIPROPIONATE [Concomitant]
     Active Substance: BECLOMETHASONE DIPROPIONATE
     Dosage: UNK, QD (2 OT)
     Route: 065
  48. BECLOMETHASONE DIPROPIONATE [Concomitant]
     Active Substance: BECLOMETHASONE DIPROPIONATE
     Dosage: 2 DF, QD, (2OT)
     Route: 065
  49. BECLOMETHASONE DIPROPIONATE [Concomitant]
     Active Substance: BECLOMETHASONE DIPROPIONATE
     Dosage: 4 DF, BID
     Route: 065
  50. CALCIUM CARBONATE [Concomitant]
     Active Substance: CALCIUM CARBONATE
     Indication: Product used for unknown indication
     Dosage: 1 DF, 0.5
     Route: 048
  51. CALCIUM CARBONATE [Concomitant]
     Active Substance: CALCIUM CARBONATE
     Dosage: 1 DF, QD
     Route: 048
  52. CALCIUM CARBONATE [Concomitant]
     Active Substance: CALCIUM CARBONATE
     Dosage: 1 DF, BID
     Route: 048

REACTIONS (12)
  - Diarrhoea [Recovered/Resolved]
  - Vomiting [Recovered/Resolved]
  - Device related infection [Recovered/Resolved]
  - Device related infection [Recovered/Resolved]
  - Abdominal rigidity [Recovered/Resolved]
  - Abdominal rigidity [Recovered/Resolved]
  - Abdominal rigidity [Recovered/Resolved with Sequelae]
  - Muscle spasms [Recovered/Resolved with Sequelae]
  - Muscle spasms [Recovered/Resolved]
  - Muscle spasms [Recovered/Resolved]
  - Muscle spasms [Recovered/Resolved with Sequelae]
  - Off label use [Unknown]

NARRATIVE: CASE EVENT DATE: 20181001
